FAERS Safety Report 11966397 (Version 1)
Quarter: 2016Q1

REPORT INFORMATION
  Report Type: Spontaneous
  Country: US (occurrence: None)
  Receive Date: 20160126
  Receipt Date: 20160126
  Transmission Date: 20160526
  Serious: No
  Sender: FDA-Public Use
  Company Number: None

PATIENT
  Age: 52 Year

DRUGS (15)
  1. DANAZOL. [Concomitant]
     Active Substance: DANAZOL
  2. CRANBERRY. [Concomitant]
     Active Substance: CRANBERRY
  3. CALCIUM [Concomitant]
     Active Substance: CALCIUM
  4. MILK THISTLE [Concomitant]
     Active Substance: MILK THISTLE
  5. ANGELIQ [Concomitant]
     Active Substance: DROSPIRENONE\ESTRADIOL
  6. MAGNESIUM [Concomitant]
     Active Substance: MAGNESIUM
  7. MOLYBDENUM [Concomitant]
     Active Substance: MOLYBDENUM
  8. NORCO [Concomitant]
     Active Substance: ACETAMINOPHEN\HYDROCODONE BITARTRATE
  9. VITAMIN D [Concomitant]
     Active Substance: CHOLECALCIFEROL
  10. FOLIC ACID. [Concomitant]
     Active Substance: FOLIC ACID
  11. LIALDA [Concomitant]
     Active Substance: MESALAMINE
  12. BLADDER EASE (TM) [Concomitant]
  13. MARSHMALLOW ROOT [Concomitant]
  14. NIACIN. [Concomitant]
     Active Substance: NIACIN
  15. UP AND UP IBUPROFEN [Suspect]
     Active Substance: IBUPROFEN
     Indication: PAIN IN EXTREMITY
     Dates: start: 20160113, end: 20160125

REACTIONS (3)
  - Drug ineffective [None]
  - Product quality issue [None]
  - Product counterfeit [None]

NARRATIVE: CASE EVENT DATE: 20160125
